FAERS Safety Report 19614473 (Version 1)
Quarter: 2021Q3

REPORT INFORMATION
  Report Type: Spontaneous
  Country: US (occurrence: US)
  Receive Date: 20210726
  Receipt Date: 20210726
  Transmission Date: 20211014
  Serious: No
  Sender: FDA-Public Use
  Company Number: None

PATIENT
  Age: 65 Year
  Sex: Female

DRUGS (1)
  1. XELODA [Suspect]
     Active Substance: CAPECITABINE
     Indication: NEOPLASM MALIGNANT
     Route: 048
     Dates: start: 202106, end: 20210726

REACTIONS (3)
  - Abdominal pain upper [None]
  - Fluid intake reduced [None]
  - Decreased appetite [None]

NARRATIVE: CASE EVENT DATE: 20210726
